FAERS Safety Report 9108434 (Version 3)
Quarter: 2013Q3

REPORT INFORMATION
  Report Type: Spontaneous
  Country: US (occurrence: US)
  Receive Date: 20130222
  Receipt Date: 20130806
  Transmission Date: 20140515
  Serious: Yes (Hospitalization, Other)
  Sender: FDA-Public Use
  Company Number: US-PFIZER INC-2013010082

PATIENT
  Age: 68 Year
  Sex: Male

DRUGS (1)
  1. VFEND [Suspect]
     Dosage: 200 MG, 2X/DAY
     Route: 048
     Dates: start: 20121126

REACTIONS (5)
  - Fall [Unknown]
  - Pneumonia [Unknown]
  - Graft versus host disease [Unknown]
  - Drug interaction [Unknown]
  - Asthenia [Not Recovered/Not Resolved]
